FAERS Safety Report 8308606-4 (Version None)
Quarter: 2012Q2

REPORT INFORMATION
  Report Type: 
  Country: None (occurrence: None)
  Receive Date: 20120402
  Receipt Date: 20120326
  Transmission Date: 20120825
  Serious: Yes (Life-Threatening, Hospitalization)
  Sender: FDA-Public Use
  Company Number: 2011029169

PATIENT
  Age: 13 Year

DRUGS (6)
  1. IMMUNE GLOBULIN (HUMAN) [Suspect]
     Indication: BRUTON'S AGAMMAGLOBULINAEMIA
  2. ASTOMIN (DIMEMORFAN PHOSPHATE) [Concomitant]
  3. IBUPROFEN [Concomitant]
  4. VALTREX [Concomitant]
  5. MUCODYNE (CARBOCISTEINE) [Concomitant]
  6. INTAL [Concomitant]

REACTIONS (10)
  - SENSORY DISTURBANCE [None]
  - PYREXIA [None]
  - HYPOAESTHESIA [None]
  - VASCULITIS [None]
  - ENCEPHALITIS [None]
  - VOMITING [None]
  - MUSCULOSKELETAL STIFFNESS [None]
  - TINNITUS [None]
  - SOMNOLENCE [None]
  - TREMOR [None]
